FAERS Safety Report 5091742-6 (Version None)
Quarter: 2006Q3

REPORT INFORMATION
  Report Type: 
  Country: None (occurrence: None)
  Receive Date: 20060829
  Receipt Date: 20060501
  Transmission Date: 20061208
  Serious: No
  Sender: FDA-Public Use
  Company Number: US-BRISTOL-MYERS SQUIBB COMPANY-13362868

PATIENT
  Age: 74 Year
  Sex: Male
  Weight: 78 kg

DRUGS (2)
  1. ERBITUX [Suspect]
     Indication: COLON CANCER
  2. VITAMIN B-12 [Concomitant]

REACTIONS (9)
  - ASTHENIA [None]
  - BLOOD MAGNESIUM DECREASED [None]
  - DIARRHOEA [None]
  - DYSGEUSIA [None]
  - HERPES ZOSTER [None]
  - HYPOTENSION [None]
  - MEDICATION ERROR [None]
  - TOOTHACHE [None]
  - WEIGHT DECREASED [None]
